FAERS Safety Report 6076754-8 (Version None)
Quarter: 2009Q1

REPORT INFORMATION
  Report Type: 
  Country: None (occurrence: None)
  Receive Date: 20090211
  Receipt Date: 20090130
  Transmission Date: 20090719
  Serious: Yes (Other)
  Sender: FDA-Public Use
  Company Number: SPV1-2009-00181

PATIENT
  Age: 22 Month
  Sex: Male
  Weight: 13.5 kg

DRUGS (1)
  1. ELAPRASE [Suspect]
     Indication: MUCOPOLYSACCHARIDOSIS II
     Dosage: IV DRIP
     Route: 041

REACTIONS (3)
  - ABNORMAL BEHAVIOUR [None]
  - HYPERTENSION [None]
  - INFUSION RELATED REACTION [None]
